FAERS Safety Report 7044638-4 (Version None)
Quarter: 2010Q4

REPORT INFORMATION
  Report Type: 
  Country: None (occurrence: None)
  Receive Date: 20101014
  Receipt Date: 20100928
  Transmission Date: 20110411
  Serious: Yes (Hospitalization, Other)
  Sender: FDA-Public Use
  Company Number: SE-PURDUE-GBR-2010-0007117

PATIENT
  Sex: Female

DRUGS (8)
  1. NORSPAN 5 MIKROGRAM/ TIMME DEPOTPLASTER [Suspect]
     Indication: PAIN
     Dosage: 5 MCG, Q1H
     Route: 062
     Dates: start: 20100729, end: 20100801
  2. ASPIRIN [Concomitant]
     Dosage: 75 MG, UNK
  3. FURIX [Concomitant]
     Dosage: 20 MG, UNK
  4. ALVEDON [Concomitant]
     Dosage: 500 MG, UNK
  5. MOVICOL                            /01625101/ [Concomitant]
  6. TRIOBE                             /01079901/ [Concomitant]
  7. SELOKENZOC [Concomitant]
     Dosage: 50 MG, DAILY
  8. SELOKENZOC [Concomitant]
     Dosage: 75 MG, DAILY

REACTIONS (4)
  - DYSARTHRIA [None]
  - DYSKINESIA [None]
  - HALLUCINATION, VISUAL [None]
  - PERIODIC LIMB MOVEMENT DISORDER [None]
